FAERS Safety Report 5051594-7 (Version None)
Quarter: 2006Q3

REPORT INFORMATION
  Report Type: 
  Country: None (occurrence: None)
  Receive Date: 20060714
  Receipt Date: 20060703
  Transmission Date: 20061208
  Serious: Yes (Hospitalization, Other)
  Sender: FDA-Public Use
  Company Number: US-AMGEN-STX185000

PATIENT
  Sex: Male

DRUGS (2)
  1. ENBREL [Suspect]
     Indication: RHEUMATOID ARTHRITIS
     Route: 058
     Dates: start: 20000801
  2. METHOTREXATE [Concomitant]
     Route: 048
     Dates: start: 20060501

REACTIONS (6)
  - ANXIETY [None]
  - INFLAMMATION [None]
  - INSOMNIA [None]
  - KNEE ARTHROPLASTY [None]
  - NEUROPATHY [None]
  - RESTLESSNESS [None]
